FAERS Safety Report 24882846 (Version 2)
Quarter: 2025Q1

REPORT INFORMATION
  Report Type: Spontaneous
  Country: US (occurrence: US)
  Receive Date: 20250124
  Receipt Date: 20250205
  Transmission Date: 20250409
  Serious: Yes (Other)
  Sender: AMGEN
  Company Number: US-AMGEN-USASP2025011515

PATIENT
  Age: 80 Year
  Sex: Female

DRUGS (6)
  1. REPATHA [Suspect]
     Active Substance: EVOLOCUMAB
     Indication: Hypercholesterolaemia
     Dosage: 140 MILLIGRAM, Q2WK (PRODUCT STRENGTH 140 MG)
     Route: 058
  2. REPATHA [Suspect]
     Active Substance: EVOLOCUMAB
     Indication: Blood cholesterol increased
     Dosage: 140 MILLIGRAM, Q2WK (PRODUCT STRENGTH 140 MG)
     Route: 058
  3. REPATHA [Suspect]
     Active Substance: EVOLOCUMAB
     Dosage: 140 MILLIGRAM, Q2WK (PRODUCT STRENGTH 140 MG)
     Route: 058
  4. ISOSORBIDE [Concomitant]
     Active Substance: ISOSORBIDE
  5. NITROGLYCERIN [Concomitant]
     Active Substance: NITROGLYCERIN
  6. VALSARTAN [Concomitant]
     Active Substance: VALSARTAN

REACTIONS (8)
  - Angina pectoris [Unknown]
  - Glaucoma [Unknown]
  - Myocardial infarction [Unknown]
  - Device difficult to use [Unknown]
  - Drug dose omission by device [Unknown]
  - Pain in extremity [Unknown]
  - Hypertension [Unknown]
  - Injection site haemorrhage [Unknown]

NARRATIVE: CASE EVENT DATE: 20250113
